FAERS Safety Report 17612683 (Version 1)
Quarter: 2020Q2

REPORT INFORMATION
  Report Type: Other
  Country: None (occurrence: FI)
  Receive Date: 20200401
  Receipt Date: 20200401
  Transmission Date: 20200713
  Serious: Yes (Other)
  Sender: FDA-Public Use
  Company Number: FI-BAUSCH-BL-2020-003115

PATIENT

DRUGS (8)
  1. VINCRISTINE [Suspect]
     Active Substance: VINCRISTINE
     Indication: ACUTE LYMPHOCYTIC LEUKAEMIA
     Dosage: SIX TIMES (MAXIMUM DOSE 2.0 MG IN THE NOPHO ALL92 PROTOCOL AND 2.5 MG IN THE NOPHO ALL2000 PROTOCOL)
     Route: 065
  2. METHOTREXATE. [Suspect]
     Active Substance: METHOTREXATE
     Indication: ACUTE LYMPHOCYTIC LEUKAEMIA
     Dosage: RECEIVED ON DAYS 1, 8, 15 AND 29
     Route: 037
  3. CYTARABINE. [Suspect]
     Active Substance: CYTARABINE
     Indication: ACUTE LYMPHOCYTIC LEUKAEMIA
     Dosage: 12 G/M2 (HIGH DOSE) UNDER HIGH RISK PROTOCOL
     Route: 065
  4. PREDNISOLONE. [Suspect]
     Active Substance: PREDNISOLONE
     Dosage: TAPERED DOSE
     Route: 065
  5. ASPARAGINASE [Suspect]
     Active Substance: ASPARAGINASE
     Indication: ACUTE LYMPHOCYTIC LEUKAEMIA
     Dosage: ERWINIA 30 000 IU/M2 ON DAYS 37-46, AND ESCHERICHIA COLI-ASPARAGINASE 6500 IU/M2 AT 3-4 DAYS 36-46
     Route: 065
  6. PREDNISOLONE. [Suspect]
     Active Substance: PREDNISOLONE
     Indication: ACUTE LYMPHOCYTIC LEUKAEMIA
     Dosage: ON DAYS 1 TO 36
     Route: 065
  7. METHOTREXATE. [Suspect]
     Active Substance: METHOTREXATE
     Dosage: HIGH DOSE COMBINED WITH INTRATHECAL METHOTREXATE INJECTION
     Route: 065
  8. DOXORUBICIN [Suspect]
     Active Substance: DOXORUBICIN
     Indication: ACUTE LYMPHOCYTIC LEUKAEMIA
     Dosage: 3-4 TIME DEPENDING ON RISK STRATIFICATION IN NOPHO ALL92, 2-3 TIMES IN NOPHO ALL2000 PROTOCOL
     Route: 065

REACTIONS (16)
  - Posterior reversible encephalopathy syndrome [Unknown]
  - Cerebral hypoperfusion [Unknown]
  - Cerebral venous sinus thrombosis [Unknown]
  - Hyponatraemia [Unknown]
  - Brain injury [Unknown]
  - Cerebral haemorrhage [Unknown]
  - Obstructive airways disorder [Unknown]
  - Hypertension [Unknown]
  - Infection [Unknown]
  - Encephalitis [Unknown]
  - Seizure [Unknown]
  - Hypoglycaemia [Unknown]
  - Mediastinal mass [Unknown]
  - Nervous system disorder [Unknown]
  - Adverse event [Unknown]
  - Sepsis [Unknown]
